FAERS Safety Report 7407669-8 (Version None)
Quarter: 2011Q2

REPORT INFORMATION
  Report Type: 
  Country: None (occurrence: None)
  Receive Date: 20110412
  Receipt Date: 20100906
  Transmission Date: 20111010
  Serious: Yes (Hospitalization)
  Sender: FDA-Public Use
  Company Number: ES-BAYER-201038761GPV

PATIENT
  Age: 67 Year
  Sex: Male

DRUGS (2)
  1. NEXAVAR [Suspect]
     Route: 065
     Dates: start: 20100101
  2. TEMODAL [Suspect]
     Indication: METASTATIC MALIGNANT MELANOMA
     Dosage: 36 MG, UNK
     Route: 048
     Dates: start: 20100706, end: 20100825

REACTIONS (1)
  - RETINAL DETACHMENT [None]
